FAERS Safety Report 6078526-7 (Version None)
Quarter: 2009Q1

REPORT INFORMATION
  Report Type: 
  Country: None (occurrence: None)
  Receive Date: 20090211
  Receipt Date: 20090211
  Transmission Date: 20090719
  Serious: Yes (Other)
  Sender: FDA-Public Use
  Company Number: None

PATIENT
  Age: 47 Year
  Sex: Female
  Weight: 76.6579 kg

DRUGS (1)
  1. PREDNISONE TAB [Suspect]
     Indication: ASTHMA
     Dosage: 20MG BID PO
     Route: 048
     Dates: start: 20081011, end: 20081014

REACTIONS (3)
  - ANGIOEDEMA [None]
  - FLUSHING [None]
  - PRURITUS [None]
